FAERS Safety Report 15541361 (Version 1)
Quarter: 2018Q4

REPORT INFORMATION
  Report Type: Spontaneous
  Country: CN (occurrence: CN)
  Receive Date: 20181023
  Receipt Date: 20181023
  Transmission Date: 20190205
  Serious: Yes (Other)
  Sender: FDA-Public Use
  Company Number: CN-PFIZER INC-2018411970

PATIENT
  Age: 14 Year
  Sex: Female
  Weight: 30 kg

DRUGS (1)
  1. ZYVOX [Suspect]
     Active Substance: LINEZOLID
     Indication: LUNG INFECTION
     Dosage: 600 MG, 1X/DAY
     Route: 050
     Dates: start: 20180720, end: 20180722

REACTIONS (4)
  - Product use issue [Unknown]
  - Platelet count decreased [Recovering/Resolving]
  - Mucosal haemorrhage [Recovering/Resolving]
  - Ecchymosis [Recovering/Resolving]

NARRATIVE: CASE EVENT DATE: 20180722
